FAERS Safety Report 5481312-X (Version None)
Quarter: 2007Q4

REPORT INFORMATION
  Report Type: 
  Country: None (occurrence: None)
  Receive Date: 20071005
  Receipt Date: 20071005
  Transmission Date: 20080405
  Serious: Yes (Other)
  Sender: FDA-Public Use
  Company Number: None

PATIENT
  Sex: Female
  Weight: 85.7298 kg

DRUGS (2)
  1. AMLODIPINE [Suspect]
     Indication: HYPERTENSION
     Dosage: 5MG QD PO
     Route: 048
     Dates: start: 20070907
  2. CLONIDINE 0.1 MG 2 BID [Suspect]
     Indication: HYPERTENSION
     Dosage: 0.1 MG BID PO
     Route: 048
     Dates: start: 20060806

REACTIONS (4)
  - PHARMACEUTICAL PRODUCT COMPLAINT [None]
  - PRURITUS [None]
  - RASH [None]
  - REACTION TO DRUG EXCIPIENTS [None]
